FAERS Safety Report 7892762-6 (Version None)
Quarter: 2011Q4

REPORT INFORMATION
  Report Type: 
  Country: None (occurrence: None)
  Receive Date: 20111104
  Receipt Date: 20111028
  Transmission Date: 20120403
  Serious: Yes (Death, Hospitalization)
  Sender: FDA-Public Use
  Company Number: BE-BAYER-200938103GPV

PATIENT
  Age: 65 Year
  Sex: Male
  Weight: 54.1 kg

DRUGS (29)
  1. DURAGESIC-100 [Concomitant]
     Dates: start: 20090826, end: 20091007
  2. METFORMAX [Concomitant]
     Indication: DIABETES MELLITUS
     Dosage: 2550 MG (DAILY DOSE), ,
     Dates: start: 20090630, end: 20090915
  3. ACTRAPID [Concomitant]
     Indication: DIABETES MELLITUS
     Dosage: 6 U (DAILY DOSE), ,
     Dates: start: 20091015, end: 20091015
  4. DOXORUBICIN HCL [Suspect]
     Indication: HEPATIC NEOPLASM MALIGNANT
  5. DURAGESIC-100 [Concomitant]
     Dates: start: 20091008, end: 20091105
  6. PANTOPRAZOLE SODIUM [Concomitant]
     Indication: OESOPHAGITIS
     Dates: start: 20091014, end: 20091019
  7. SORAFENIB (RAF KINASE INHIBITOR) [Suspect]
     Indication: HEPATIC NEOPLASM MALIGNANT
     Route: 048
     Dates: start: 20090428, end: 20091104
  8. OMEPRAZOLE [Concomitant]
     Dosage: 40 MG (DAILY DOSE), ,
     Dates: start: 20091020, end: 20091105
  9. PARACETAMOL WITH CODEINE PHOSPHATE [Concomitant]
     Indication: CHEST PAIN
     Dosage: 3 G (DAILY DOSE), ,
     Dates: start: 20090814, end: 20090818
  10. MOTILIUM [Concomitant]
     Indication: NAUSEA
     Dosage: 10 MG (DAILY DOSE), ,
     Dates: start: 20091015, end: 20091015
  11. REPAGLINIDE [Concomitant]
     Indication: DIABETES MELLITUS
     Dosage: 3 MG (DAILY DOSE), ,
     Dates: start: 20000101, end: 20090623
  12. REPAGLINIDE [Concomitant]
     Dates: start: 20090630, end: 20091105
  13. DURAGESIC-100 [Concomitant]
     Indication: CANCER PAIN
     Dates: start: 20090429, end: 20090825
  14. LITICAN [Concomitant]
     Indication: NAUSEA
     Dosage: 100 MG (DAILY DOSE), ,
     Dates: start: 20091013, end: 20091014
  15. ULTRA K [Concomitant]
     Dosage: 45 ML (DAILY DOSE), ,
     Dates: start: 20091017, end: 20091019
  16. MORPHINE HCL ELIXIR [Concomitant]
     Dates: start: 20091017, end: 20091017
  17. PERFUSALGAN [Concomitant]
     Indication: ABDOMINAL PAIN UPPER
     Dosage: 1 G (DAILY DOSE), ,
     Dates: start: 20091013, end: 20091015
  18. SODIUM PHOSPHATES [Concomitant]
     Indication: CONSTIPATION
     Dosage: 133 ML (DAILY DOSE), ,
     Dates: start: 20091017, end: 20091017
  19. ACTRAPID [Concomitant]
     Dosage: 8 U (DAILY DOSE), ,
     Dates: start: 20091103, end: 20091105
  20. ULTRA K [Concomitant]
     Indication: HYPOKALAEMIA
     Dosage: 30 ML (DAILY DOSE), ,
     Dates: start: 20091016, end: 20091016
  21. MORPHINE HCL ELIXIR [Concomitant]
     Indication: ABDOMINAL PAIN UPPER
     Dates: start: 20091013, end: 20091014
  22. LITICAN [Concomitant]
     Dosage: 150 MG (DAILY DOSE), ,
     Dates: start: 20091015, end: 20091015
  23. MOVIPREP [Concomitant]
     Indication: CONSTIPATION
     Dosage: 2 DF (DAILY DOSE), ,
     Dates: start: 20091015, end: 20091019
  24. OMEPRAZOLE [Concomitant]
     Indication: OESOPHAGITIS
     Dosage: 40 MG (DAILY DOSE), ,
     Dates: start: 20080201, end: 20091013
  25. NOVABAN [Concomitant]
     Indication: PROPHYLAXIS OF NAUSEA AND VOMITING
     Dosage: 5 MG (DAILY DOSE), ,
     Dates: start: 20091013, end: 20091013
  26. MS DIRECT [Concomitant]
     Indication: CANCER PAIN
     Dates: start: 20090508, end: 20091105
  27. METFORMAX [Concomitant]
     Dosage: 2550 MG (DAILY DOSE), ,
     Dates: start: 20000101, end: 20090623
  28. MOTILIUM [Concomitant]
     Dosage: 30 MG (DAILY DOSE), ,
     Dates: start: 20091016, end: 20091019
  29. ENALAPRIL MALEATE [Concomitant]
     Indication: HYPERTENSION
     Dosage: 20 MG (DAILY DOSE), ,
     Dates: start: 20060101, end: 20091105

REACTIONS (2)
  - STOMATITIS [None]
  - CACHEXIA [None]
